FAERS Safety Report 7922283-3 (Version None)
Quarter: 2011Q4

REPORT INFORMATION
  Report Type: 
  Country: None (occurrence: None)
  Receive Date: 20111117
  Receipt Date: 20111108
  Transmission Date: 20120403
  Serious: Yes (Other)
  Sender: FDA-Public Use
  Company Number: US-ASTRAZENECA-2011SE62309

PATIENT
  Age: 54 Year
  Sex: Female
  Weight: 68 kg

DRUGS (4)
  1. SEROQUEL XR [Suspect]
     Indication: DEPRESSION
     Route: 048
     Dates: start: 20100101
  2. CLONAZEPAM [Concomitant]
     Indication: ANXIETY
     Route: 048
     Dates: start: 20100101
  3. OMEPRAZOLE [Concomitant]
     Indication: PAIN
     Dosage: 50
     Route: 048
  4. XALEXA [Concomitant]
     Indication: DEPRESSION
     Dosage: 40 DAILY
     Route: 048
     Dates: start: 20010101

REACTIONS (9)
  - HIATUS HERNIA [None]
  - ABDOMINAL PAIN UPPER [None]
  - PAIN [None]
  - DYSPHAGIA [None]
  - GASTRIC DISORDER [None]
  - FLATULENCE [None]
  - NAUSEA [None]
  - GASTRIC ULCER [None]
  - DYSPNOEA [None]
